FAERS Safety Report 16098773 (Version 1)
Quarter: 2019Q1

REPORT INFORMATION
  Report Type: Spontaneous
  Country: CA (occurrence: CA)
  Receive Date: 20190321
  Receipt Date: 20190321
  Transmission Date: 20190418
  Serious: Yes (Other)
  Sender: FDA-Public Use
  Company Number: CA-PURDUE PHARMA-CAN-2019-0009814

PATIENT
  Age: 60 Year
  Sex: Male

DRUGS (2)
  1. PREDNISONE. [Suspect]
     Active Substance: PREDNISONE
     Indication: PAIN
     Dosage: 4 DF, DAILY
     Route: 065
  2. MORPHINE SULFATE. [Suspect]
     Active Substance: MORPHINE SULFATE
     Indication: PAIN
     Dosage: UNK, PRN
     Route: 065

REACTIONS (14)
  - Skin papilloma [Not Recovered/Not Resolved]
  - Diarrhoea [Not Recovered/Not Resolved]
  - Cardiac failure congestive [Not Recovered/Not Resolved]
  - Pulmonary oedema [Not Recovered/Not Resolved]
  - Blood pressure abnormal [Not Recovered/Not Resolved]
  - Insomnia [Not Recovered/Not Resolved]
  - Acrochordon [Not Recovered/Not Resolved]
  - Drug intolerance [Not Recovered/Not Resolved]
  - Fatigue [Not Recovered/Not Resolved]
  - Influenza [Not Recovered/Not Resolved]
  - Constipation [Not Recovered/Not Resolved]
  - Drug ineffective [Not Recovered/Not Resolved]
  - Oropharyngeal pain [Not Recovered/Not Resolved]
  - Weight increased [Not Recovered/Not Resolved]
